FAERS Safety Report 8153196-2 (Version None)
Quarter: 2012Q1

REPORT INFORMATION
  Report Type: 
  Country: None (occurrence: None)
  Receive Date: 20120221
  Receipt Date: 20120207
  Transmission Date: 20120608
  Serious: Yes (Other)
  Sender: FDA-Public Use
  Company Number: US-UCBSA-050143

PATIENT
  Age: 69 Year
  Sex: Male

DRUGS (1)
  1. CIMZIA [Suspect]
     Indication: CROHN'S DISEASE
     Dosage: 400 MG AT WEEK 0, 2 AND 4 , THEN 400 MG EVERY 4 WEEKS.
     Route: 058
     Dates: start: 20090701, end: 20091214

REACTIONS (1)
  - PSORIASIS [None]
